FAERS Safety Report 17496634 (Version 1)
Quarter: 2020Q1

REPORT INFORMATION
  Report Type: Spontaneous
  Country: US (occurrence: US)
  Receive Date: 20200304
  Receipt Date: 20200304
  Transmission Date: 20200409
  Serious: Yes (Life-Threatening, Hospitalization)
  Sender: FDA-Public Use
  Company Number: None

PATIENT
  Age: 71 Year
  Sex: Male
  Weight: 82.3 kg

DRUGS (1)
  1. CLOZAPINE. [Suspect]
     Active Substance: CLOZAPINE
     Indication: SCHIZOPHRENIA
     Route: 048

REACTIONS (5)
  - Drug titration error [None]
  - Small intestinal obstruction [None]
  - Pneumonia aspiration [None]
  - Acute respiratory failure [None]
  - Suicidal ideation [None]

NARRATIVE: CASE EVENT DATE: 20200212
